FAERS Safety Report 8555818 (Version 3)
Quarter: 2013Q3

REPORT INFORMATION
  Report Type: Report from Study
  Country: GB (occurrence: GB)
  Receive Date: 20120510
  Receipt Date: 20130726
  Transmission Date: 20140515
  Serious: Yes (Hospitalization, Other)
  Sender: FDA-Public Use
  Company Number: GB-ROCHE-1066369

PATIENT
  Age: 21 Year
  Sex: Female
  Weight: 60 kg

DRUGS (4)
  1. PEG-INTERFERON ALFA 2A [Suspect]
     Indication: CHRONIC HEPATITIS C
     Route: 058
     Dates: start: 20101129
  2. RIBAVIRIN [Suspect]
     Indication: CHRONIC HEPATITIS C
     Dosage: 400 MG AM, 600 MG PM
     Route: 065
     Dates: start: 20101129, end: 20110516
  3. RIBAVIRIN [Suspect]
     Dosage: DOSE REDUCED
     Route: 065
     Dates: start: 20110516
  4. BLINDED ALISPORIVIR [Suspect]
     Indication: CHRONIC HEPATITIS C
     Route: 048
     Dates: start: 20101129

REACTIONS (2)
  - Haemorrhoids [Recovered/Resolved]
  - Concomitant disease progression [Recovered/Resolved]
